FAERS Safety Report 22588682 (Version 1)
Quarter: 2023Q2

REPORT INFORMATION
  Report Type: Spontaneous
  Country: US (occurrence: None)
  Receive Date: 20230608
  Receipt Date: 20230608
  Transmission Date: 20230722
  Serious: Yes (Hospitalization)
  Sender: FDA-Public Use
  Company Number: None

PATIENT
  Sex: Female

DRUGS (2)
  1. TETRABENAZINE [Suspect]
     Active Substance: TETRABENAZINE
     Indication: Mood disorder due to a general medical condition
     Dosage: FREQUENCY : 3 TIMES A DAY;?
     Route: 048
     Dates: start: 20230517
  2. TETRABENAZINE [Suspect]
     Active Substance: TETRABENAZINE
     Indication: Depression
     Dosage: FREQUENCY : 3 TIMES A DAY;?
     Route: 048

REACTIONS (2)
  - Adverse drug reaction [None]
  - Parkinsonism [None]
